FAERS Safety Report 22590376 (Version 1)
Quarter: 2023Q2

REPORT INFORMATION
  Report Type: Spontaneous
  Country: CN (occurrence: CN)
  Receive Date: 20230612
  Receipt Date: 20230612
  Transmission Date: 20230722
  Serious: Yes (Hospitalization)
  Sender: FDA-Public Use
  Company Number: CN-ELI_LILLY_AND_COMPANY-CN202306001290

PATIENT
  Age: 71 Year
  Sex: Female
  Weight: 53 kg

DRUGS (2)
  1. ABEMACICLIB [Suspect]
     Active Substance: ABEMACICLIB
     Indication: Targeted cancer therapy
     Dosage: 100 MG, BID
     Route: 048
     Dates: start: 20230511
  2. ABEMACICLIB [Suspect]
     Active Substance: ABEMACICLIB
     Dosage: 100 MG, DOSE AS WITH 2 DAYS OF CONSUMPTION AND 1 DAY OF DISCONTINUATION
     Route: 048
     Dates: start: 20230519, end: 20230529

REACTIONS (4)
  - Renal impairment [Recovering/Resolving]
  - Liver function test abnormal [Recovering/Resolving]
  - Red blood cell count decreased [Recovering/Resolving]
  - Haemoglobin decreased [Recovering/Resolving]

NARRATIVE: CASE EVENT DATE: 20230519
